FAERS Safety Report 8732036 (Version 4)
Quarter: 2012Q4

REPORT INFORMATION
  Report Type: 
  Country: JP (occurrence: JP)
  Receive Date: 20120820
  Receipt Date: 20121031
  Transmission Date: 20130627
  Serious: Yes (Other)
  Sender: FDA-Public Use
  Company Number: JP-SANOFI-AVENTIS-2012SA059182

PATIENT
  Age: 86 Year
  Sex: Male
  Weight: 46 kg

DRUGS (4)
  1. MYSLEE [Suspect]
     Indication: SLEEP LOSS
     Route: 048
     Dates: start: 20120804, end: 20120806
  2. TORASEMIDE [Concomitant]
     Indication: OEDEMA OF LOWER EXTREMITIES
     Dates: start: 201107
  3. ALDACTONE-A [Concomitant]
     Indication: OEDEMA OF LOWER EXTREMITIES
     Dates: start: 20120608
  4. LASIX [Concomitant]
     Indication: OEDEMA OF LOWER EXTREMITIES
     Dates: start: 20120508

REACTIONS (3)
  - Convulsion [Recovered/Resolved]
  - Altered state of consciousness [Recovered/Resolved]
  - Intentional drug misuse [Unknown]
